FAERS Safety Report 5857024-7 (Version None)
Quarter: 2008Q3

REPORT INFORMATION
  Report Type: 
  Country: None (occurrence: None)
  Receive Date: 20080825
  Receipt Date: 20080812
  Transmission Date: 20090109
  Serious: No
  Sender: FDA-Public Use
  Company Number: US-BOEHRINGER INGELHEIM GMBH, GERMANY-2008-BP-12750BP

PATIENT
  Age: 84 Year
  Sex: Female

DRUGS (5)
  1. SPIRIVA [Suspect]
     Indication: CHRONIC OBSTRUCTIVE PULMONARY DISEASE
     Route: 055
     Dates: start: 20080802, end: 20080804
  2. SPIRIVA [Suspect]
     Indication: BRONCHIECTASIS
  3. NASONEX [Suspect]
     Indication: RHINITIS
     Route: 045
     Dates: start: 20080802, end: 20080805
  4. TOPROL-XL [Concomitant]
     Indication: SUPRAVENTRICULAR TACHYCARDIA
     Route: 048
     Dates: start: 20020101
  5. SIMVASTATIN [Concomitant]
     Indication: HYPERCHOLESTEROLAEMIA
     Route: 048
     Dates: start: 20040101

REACTIONS (5)
  - CRYING [None]
  - FEELING ABNORMAL [None]
  - HEADACHE [None]
  - NERVOUSNESS [None]
  - TACHYCARDIA [None]
